FAERS Safety Report 7629089-3 (Version None)
Quarter: 2011Q3

REPORT INFORMATION
  Report Type: 
  Country: None (occurrence: None)
  Receive Date: 20110722
  Receipt Date: 20110722
  Transmission Date: 20111222
  Serious: Yes (Life-Threatening, Other)
  Sender: FDA-Public Use
  Company Number: None

PATIENT
  Sex: Male
  Weight: 72.574 kg

DRUGS (1)
  1. LARIAM [Suspect]
     Indication: MALARIA PROPHYLAXIS

REACTIONS (8)
  - SLEEP DISORDER [None]
  - IMPAIRED WORK ABILITY [None]
  - PARANOIA [None]
  - AGGRESSION [None]
  - MAJOR DEPRESSION [None]
  - AFFECTIVE DISORDER [None]
  - NEUROTOXICITY [None]
  - SUICIDAL IDEATION [None]
